FAERS Safety Report 19471904 (Version 2)
Quarter: 2021Q3

REPORT INFORMATION
  Report Type: Report from Study
  Country: None (occurrence: US)
  Receive Date: 20210628
  Receipt Date: 20210914
  Transmission Date: 20211014
  Serious: Yes (Other)
  Sender: FDA-Public Use
  Company Number: US-ABBVIE-21K-163-3942545-00

PATIENT
  Age: 67 Year
  Sex: Female
  Weight: 52.66 kg

DRUGS (6)
  1. HUMIRA [Suspect]
     Active Substance: ADALIMUMAB
     Route: 058
     Dates: start: 20210613
  2. ASPIRIN. [Concomitant]
     Active Substance: ASPIRIN
     Indication: CEREBROVASCULAR ACCIDENT PROPHYLAXIS
     Route: 065
  3. MODERNA COVID?19 VACCINE [Concomitant]
     Active Substance: CX-024414
     Indication: COVID-19 IMMUNISATION
     Dosage: MODERNA
     Route: 030
     Dates: start: 20210224, end: 20210224
  4. MODERNA COVID?19 VACCINE [Concomitant]
     Active Substance: CX-024414
     Dosage: MODERNA.
     Route: 030
     Dates: start: 20210324, end: 20210324
  5. HUMIRA [Suspect]
     Active Substance: ADALIMUMAB
     Indication: RHEUMATOID ARTHRITIS
     Route: 058
     Dates: start: 20210110, end: 20210530
  6. TRAMADOL. [Concomitant]
     Active Substance: TRAMADOL
     Indication: PROCEDURAL PAIN
     Route: 065

REACTIONS (6)
  - Musculoskeletal disorder [Not Recovered/Not Resolved]
  - Rotator cuff repair [Recovering/Resolving]
  - Therapeutic product effect incomplete [Unknown]
  - Joint swelling [Unknown]
  - Pain in extremity [Recovering/Resolving]
  - Arthralgia [Not Recovered/Not Resolved]

NARRATIVE: CASE EVENT DATE: 2021
